FAERS Safety Report 15084763 (Version 1)
Quarter: 2018Q2

REPORT INFORMATION
  Report Type: Spontaneous
  Country: US (occurrence: US)
  Receive Date: 20180608
  Receipt Date: 20180608
  Transmission Date: 20180711
  Serious: Yes (Disabling)
  Sender: FDA-Public Use
  Company Number: None

PATIENT
  Age: 40 Year
  Sex: Male

DRUGS (2)
  1. DUTASTERIDE. [Suspect]
     Active Substance: DUTASTERIDE
     Indication: PROSTATOMEGALY
     Dosage: ?          QUANTITY:1 CAPSULE(S);?
     Route: 048
     Dates: start: 20171101
  2. BETA SITOSTEROL [Concomitant]

REACTIONS (5)
  - Micturition disorder [None]
  - Nervous system disorder [None]
  - Product packaging issue [None]
  - Hyperhidrosis [None]
  - Inflammation [None]

NARRATIVE: CASE EVENT DATE: 20180602
